FAERS Safety Report 14006710 (Version 1)
Quarter: 2017Q3

REPORT INFORMATION
  Report Type: Spontaneous
  Country: SA (occurrence: SA)
  Receive Date: 20170925
  Receipt Date: 20170925
  Transmission Date: 20171128
  Serious: Yes (Death, Life-Threatening, Other)
  Sender: FDA-Public Use
  Company Number: SA-WEST-WARD PHARMACEUTICALS CORP.-SA-H14001-17-03615

PATIENT
  Age: 53 Year
  Sex: Male

DRUGS (9)
  1. CASPOFUNGIN [Concomitant]
     Active Substance: CASPOFUNGIN
     Indication: PNEUMONIA KLEBSIELLA
     Route: 065
     Dates: start: 2015
  2. AMIKACIN [Suspect]
     Active Substance: AMIKACIN
     Indication: PNEUMONIA KLEBSIELLA
  3. MEROPENEM. [Suspect]
     Active Substance: MEROPENEM
     Indication: ACINETOBACTER INFECTION
     Route: 065
     Dates: start: 2015
  4. TAZOCIN [Concomitant]
     Active Substance: PIPERACILLIN SODIUM\TAZOBACTAM SODIUM
     Indication: PNEUMONIA KLEBSIELLA
     Route: 065
     Dates: start: 2015
  5. KEPPRA [Concomitant]
     Active Substance: LEVETIRACETAM
     Indication: GENERALISED TONIC-CLONIC SEIZURE
     Route: 065
     Dates: start: 201510
  6. COLISTIN [Concomitant]
     Active Substance: COLISTIN
     Indication: PNEUMONIA KLEBSIELLA
     Route: 065
     Dates: start: 2015
  7. MEROPENEM. [Suspect]
     Active Substance: MEROPENEM
     Indication: PNEUMONIA KLEBSIELLA
  8. VANCOMYCIN [Concomitant]
     Active Substance: VANCOMYCIN
     Indication: PNEUMONIA KLEBSIELLA
     Route: 065
     Dates: start: 2015
  9. AMIKACIN [Suspect]
     Active Substance: AMIKACIN
     Indication: ACINETOBACTER INFECTION
     Route: 065
     Dates: start: 2015

REACTIONS (2)
  - Septic shock [Fatal]
  - Drug resistance [Unknown]
